FAERS Safety Report 18027446 (Version 2)
Quarter: 2020Q3

REPORT INFORMATION
  Report Type: Spontaneous
  Country: HU (occurrence: HU)
  Receive Date: 20200715
  Receipt Date: 20200910
  Transmission Date: 20201103
  Serious: No
  Sender: FDA-Public Use
  Company Number: HU-JNJFOC-20200707682

PATIENT
  Age: 5 Decade
  Sex: Male
  Weight: 83 kg

DRUGS (6)
  1. TREVICTA [Suspect]
     Active Substance: PALIPERIDONE PALMITATE
     Indication: SCHIZOPHRENIA
     Route: 030
     Dates: start: 20190227
  2. TREVICTA [Suspect]
     Active Substance: PALIPERIDONE PALMITATE
  3. TREVICTA [Suspect]
     Active Substance: PALIPERIDONE PALMITATE
     Route: 030
     Dates: start: 20190522, end: 20190821
  4. CLONAZEPAM. [Concomitant]
     Active Substance: CLONAZEPAM
     Indication: PRODUCT USED FOR UNKNOWN INDICATION
     Dosage: 0.5?0?1 MG
     Route: 065
  5. LITHIUM. [Concomitant]
     Active Substance: LITHIUM
     Indication: PRODUCT USED FOR UNKNOWN INDICATION
     Route: 065
  6. VENLAFAXINE [Concomitant]
     Active Substance: VENLAFAXINE HYDROCHLORIDE
     Indication: PRODUCT USED FOR UNKNOWN INDICATION
     Dosage: 150?75?0 MG
     Route: 065

REACTIONS (4)
  - Urticaria [Recovered/Resolved]
  - Lip oedema [Recovered/Resolved]
  - Periorbital oedema [Recovered/Resolved]
  - Pyrexia [Recovered/Resolved]

NARRATIVE: CASE EVENT DATE: 20190602
